FAERS Safety Report 19611704 (Version 1)
Quarter: 2021Q3

REPORT INFORMATION
  Report Type: Spontaneous
  Country: US (occurrence: US)
  Receive Date: 20210726
  Receipt Date: 20210726
  Transmission Date: 20211014
  Serious: No
  Sender: FDA-Public Use
  Company Number: US-BIOMARINAP-US-2021-137584

PATIENT
  Age: 25 Month
  Sex: Female
  Weight: 11.5 kg

DRUGS (1)
  1. KUVAN [Suspect]
     Active Substance: SAPROPTERIN DIHYDROCHLORIDE
     Indication: PHENYLKETONURIA
     Dosage: 200 MILLIGRAM, QD
     Route: 048
     Dates: start: 20200720

REACTIONS (2)
  - Ear infection [Recovering/Resolving]
  - Pyrexia [Recovering/Resolving]
